FAERS Safety Report 5297220-3 (Version None)
Quarter: 2007Q2

REPORT INFORMATION
  Report Type: 
  Country: None (occurrence: None)
  Receive Date: 20070416
  Receipt Date: 20070404
  Transmission Date: 20071010
  Serious: Yes (Death, Life-Threatening, Other)
  Sender: FDA-Public Use
  Company Number: GB-JNJFOC-20070202925

PATIENT
  Sex: Female
  Weight: 62 kg

DRUGS (12)
  1. REMICADE [Suspect]
     Indication: ANKYLOSING SPONDYLITIS
     Route: 042
  2. AZATHIOPRINE [Concomitant]
     Route: 065
  3. ANTIDEPRESSANT [Concomitant]
     Route: 065
  4. BACLOFEN [Concomitant]
     Route: 065
  5. ENALAPRIL MALEATE [Concomitant]
     Route: 065
  6. FERROUS SULFATE TAB [Concomitant]
     Route: 065
  7. LANSOPRAZOLE [Concomitant]
     Route: 065
  8. MESALAZINE [Concomitant]
     Route: 065
  9. PROCHLORPERAZINE [Concomitant]
     Route: 065
  10. LEVOTHYROXINE SODIUM [Concomitant]
     Route: 065
  11. TRAMADOL HCL [Concomitant]
     Route: 065
  12. PHENYLBUTAZONE [Concomitant]
     Route: 065

REACTIONS (2)
  - ANKYLOSING SPONDYLITIS [None]
  - CROHN'S DISEASE [None]
